FAERS Safety Report 5663834-1 (Version None)
Quarter: 2008Q1

REPORT INFORMATION
  Report Type: 
  Country: None (occurrence: None)
  Receive Date: 20080311
  Receipt Date: 20080128
  Transmission Date: 20080703
  Serious: Yes (Hospitalization, Other)
  Sender: FDA-Public Use
  Company Number: 100#08#2008-00980

PATIENT
  Age: 68 Year
  Sex: Female

DRUGS (9)
  1. ALENDRONIC ACID [Suspect]
     Indication: DRUG USE FOR UNKNOWN INDICATION
     Dosage: ORAL
     Route: 048
  2. RAMIPRIL [Concomitant]
  3. HYDROCHLOROTHIAZIDE [Concomitant]
  4. PANTOPRAZOLE SODIUM [Concomitant]
  5. LEVOTHYROXINE SODIUM [Concomitant]
  6. POTASSIUM IODIDE (POTASSIUM IODIDE) [Concomitant]
  7. CALCIUM GLUCONATE [Concomitant]
  8. CALCIUM LACTOBIONATE (CALCIUM LACTOBIONATE) [Concomitant]
  9. DULOXETINE (DULOXETINE) [Concomitant]

REACTIONS (8)
  - AMNESIA [None]
  - ATELECTASIS [None]
  - C-REACTIVE PROTEIN INCREASED [None]
  - COUGH [None]
  - DYSPHONIA [None]
  - FOREIGN BODY ASPIRATION [None]
  - HAEMOPHILUS INFECTION [None]
  - RESPIRATORY TRACT IRRITATION [None]
